FAERS Safety Report 15490955 (Version 1)
Quarter: 2018Q4

REPORT INFORMATION
  Report Type: Spontaneous
  Country: GB (occurrence: GB)
  Receive Date: 20181012
  Receipt Date: 20181012
  Transmission Date: 20190205
  Serious: Yes (Other)
  Sender: FDA-Public Use
  Company Number: GB-TEVA-2018-GB-963461

PATIENT
  Age: 60 Year
  Sex: Female
  Weight: 89 kg

DRUGS (2)
  1. PARACETAMOL [Concomitant]
     Active Substance: ACETAMINOPHEN
     Route: 065
  2. NAPROXEN. [Suspect]
     Active Substance: NAPROXEN
     Indication: PAIN
     Dosage: 1000 MILLIGRAM DAILY;
     Route: 065
     Dates: start: 20180903, end: 20180910

REACTIONS (5)
  - Dermatitis [Recovering/Resolving]
  - Skin discolouration [Not Recovered/Not Resolved]
  - Skin odour abnormal [Recovered/Resolved]
  - Skin weeping [Recovered/Resolved]
  - Psoriasis [Recovering/Resolving]

NARRATIVE: CASE EVENT DATE: 20180907
